FAERS Safety Report 5233134-2 (Version None)
Quarter: 2007Q1

REPORT INFORMATION
  Report Type: 
  Country: None (occurrence: None)
  Receive Date: 20070207
  Receipt Date: 20070130
  Transmission Date: 20070707
  Serious: Yes (Death)
  Sender: FDA-Public Use
  Company Number: DE-PFIZER INC-2007005258

PATIENT
  Sex: Female

DRUGS (3)
  1. FRAGMIN [Suspect]
     Indication: THROMBOSIS PROPHYLAXIS
     Route: 058
     Dates: start: 20061227, end: 20070102
  2. INSULIN [Concomitant]
  3. SODIUM CHLORIDE [Concomitant]

REACTIONS (1)
  - MALIGNANT HEPATOBILIARY NEOPLASM [None]
